FAERS Safety Report 4461642-0 (Version None)
Quarter: 2004Q3

REPORT INFORMATION
  Report Type: 
  Country: None (occurrence: None)
  Receive Date: 20040924
  Receipt Date: 20040924
  Transmission Date: 20050211
  Serious: Yes (Death, Hospitalization)
  Sender: FDA-Public Use
  Company Number: None

PATIENT
  Age: 54 Year
  Sex: Female
  Weight: 121.3 kg

DRUGS (11)
  1. DAUNORUBICIN HCL [Suspect]
     Indication: ACUTE MYELOID LEUKAEMIA
     Dosage: 45.0 MG /M2 DAYS 1, 3, 5 IV
     Route: 042
     Dates: start: 20040819, end: 20040825
  2. CYTARABINE [Suspect]
     Indication: ACUTE MYELOID LEUKAEMIA
     Dosage: 100 MG/M2 DAYS 1-7 IV
     Route: 042
     Dates: start: 20040904, end: 20040908
  3. SYNTHROID [Concomitant]
  4. DEPAKOTE [Concomitant]
  5. LEXAPRO [Concomitant]
  6. RISPERDAL [Concomitant]
  7. PREVACID [Concomitant]
  8. ALBUTEROL [Concomitant]
  9. INSULIN [Concomitant]
  10. GLUCOPHAGE [Concomitant]
  11. ACTOS [Concomitant]

REACTIONS (4)
  - ACUTE RESPIRATORY DISTRESS SYNDROME [None]
  - BRADYCARDIA [None]
  - CARDIAC ARREST [None]
  - HYPOTENSION [None]
